FAERS Safety Report 13668309 (Version 2)
Quarter: 2017Q3

REPORT INFORMATION
  Report Type: Spontaneous
  Country: US (occurrence: US)
  Receive Date: 20170620
  Receipt Date: 20170918
  Transmission Date: 20171127
  Serious: No
  Sender: FDA-Public Use
  Company Number: US-PFIZER INC-2017263609

PATIENT
  Age: 49 Year
  Sex: Female

DRUGS (1)
  1. XELJANZ [Suspect]
     Active Substance: TOFACITINIB CITRATE
     Indication: ARTHRALGIA
     Dosage: 5 MG, UNK

REACTIONS (6)
  - Musculoskeletal stiffness [Unknown]
  - Tenderness [Unknown]
  - Synovitis [Unknown]
  - White blood cell count increased [Unknown]
  - Product use in unapproved indication [Unknown]
  - Blood alkaline phosphatase increased [Unknown]
